FAERS Safety Report 4889811-6 (Version None)
Quarter: 2006Q1

REPORT INFORMATION
  Report Type: 
  Country: None (occurrence: None)
  Receive Date: 20060124
  Receipt Date: 20051005
  Transmission Date: 20060701
  Serious: Yes (Death, Hospitalization, Disabling)
  Sender: FDA-Public Use
  Company Number: US-MERCK-0510USA04720

PATIENT
  Age: 80 Year
  Sex: Female

DRUGS (8)
  1. VIOXX [Suspect]
     Indication: ARTHRALGIA
     Route: 048
     Dates: end: 20020205
  2. LOTREL [Concomitant]
     Route: 048
  3. CARDURA [Concomitant]
     Route: 048
  4. SYNTHROID [Concomitant]
     Route: 048
  5. NEXIUM [Concomitant]
     Route: 048
  6. LIPITOR [Concomitant]
     Route: 048
  7. AMITRIPTYLINE HYDROCHLORIDE [Concomitant]
     Route: 048
  8. VIOXX [Suspect]
     Route: 048

REACTIONS (13)
  - ANXIETY [None]
  - ARTERIOSCLEROSIS [None]
  - CARDIAC FAILURE CONGESTIVE [None]
  - CEREBRAL ARTERY OCCLUSION [None]
  - CEREBROVASCULAR ACCIDENT [None]
  - DELUSION [None]
  - DEPRESSION [None]
  - DYSPHAGIA [None]
  - HYPERCHOLESTEROLAEMIA [None]
  - NIGHTMARE [None]
  - OSTEOARTHRITIS [None]
  - PNEUMONIA ASPIRATION [None]
  - STRESS [None]
